FAERS Safety Report 16920932 (Version 1)
Quarter: 2019Q4

REPORT INFORMATION
  Report Type: Report from Study
  Country: US (occurrence: US)
  Receive Date: 20191015
  Receipt Date: 20191015
  Transmission Date: 20200122
  Serious: No
  Sender: FDA-Public Use
  Company Number: US-VIFOR (INTERNATIONAL) INC.-VIT-2018-12550

PATIENT
  Sex: Female
  Weight: 46.31 kg

DRUGS (17)
  1. CITRACAL [Concomitant]
     Active Substance: CALCIUM CITRATE
  2. FLEXERIL [Concomitant]
     Active Substance: CYCLOBENZAPRINE HYDROCHLORIDE
  3. XANAX [Concomitant]
     Active Substance: ALPRAZOLAM
  4. VITAMIN D [Concomitant]
     Active Substance: VITAMIN D NOS
  5. REQUIP [Concomitant]
     Active Substance: ROPINIROLE HYDROCHLORIDE
  6. CODEINE SULFATE. [Concomitant]
     Active Substance: CODEINE SULFATE
  7. VELTASSA [Suspect]
     Active Substance: PATIROMER
     Indication: HYPERKALAEMIA
  8. VELTASSA [Suspect]
     Active Substance: PATIROMER
     Route: 048
     Dates: start: 20190306
  9. BUPRENORPHINE. [Concomitant]
     Active Substance: BUPRENORPHINE
  10. CREON [Concomitant]
     Active Substance: PANCRELIPASE AMYLASE\PANCRELIPASE LIPASE\PANCRELIPASE PROTEASE
  11. VELTASSA [Suspect]
     Active Substance: PATIROMER
     Route: 048
     Dates: start: 20181218
  12. ENTERAGAM [Concomitant]
     Active Substance: DIETARY SUPPLEMENT
  13. BIOTIN [Concomitant]
     Active Substance: BIOTIN
  14. VELTASSA [Suspect]
     Active Substance: PATIROMER
  15. CALCIUM [Concomitant]
     Active Substance: CALCIUM
  16. LOMOTIL [Concomitant]
     Active Substance: ATROPINE SULFATE\DIPHENOXYLATE HYDROCHLORIDE
  17. OCUVITE [Concomitant]
     Active Substance: VITAMINS

REACTIONS (7)
  - Inappropriate schedule of product administration [Unknown]
  - Muscle spasms [Unknown]
  - Stoma complication [Unknown]
  - Abnormal loss of weight [Unknown]
  - Vulvovaginal pain [Unknown]
  - Pruritus [Not Recovered/Not Resolved]
  - Colectomy [Unknown]

NARRATIVE: CASE EVENT DATE: 2019
